FAERS Safety Report 8491115-X (Version None)
Quarter: 2012Q3

REPORT INFORMATION
  Report Type: 
  Country: None (occurrence: None)
  Receive Date: 20120706
  Receipt Date: 20120628
  Transmission Date: 20120928
  Serious: Yes (Other)
  Sender: FDA-Public Use
  Company Number: US-BAYER-2012-065485

PATIENT
  Age: 24 Year
  Sex: Female

DRUGS (5)
  1. BUSPAR [Concomitant]
  2. PROZAC [Concomitant]
  3. YASMIN [Suspect]
  4. CELEXA [Concomitant]
  5. DROSPIRENONE AND ETHINYL ESTRADIOL [Suspect]
     Dosage: UNK
     Dates: start: 20100421, end: 20101018

REACTIONS (1)
  - DEEP VEIN THROMBOSIS [None]
